FAERS Safety Report 21314544 (Version 1)
Quarter: 2022Q3

REPORT INFORMATION
  Report Type: Spontaneous
  Country: US (occurrence: None)
  Receive Date: 20220909
  Receipt Date: 20220909
  Transmission Date: 20221027
  Serious: Yes (Hospitalization)
  Sender: FDA-Public Use
  Company Number: None

PATIENT
  Sex: Female
  Weight: 43.54 kg

DRUGS (8)
  1. DEFERASIROX [Suspect]
     Active Substance: DEFERASIROX
     Indication: Refractory cytopenia with unilineage dysplasia
     Dosage: 500MG DAILY ORAL - DISPERSE IN WATER
     Route: 048
     Dates: start: 202006
  2. DEFERASIROX [Suspect]
     Active Substance: DEFERASIROX
     Indication: Refractory cytopenia with unilineage dysplasia
     Dosage: 375MG DAILY ORAL - DISPERSE IN WATER?
     Route: 048
     Dates: start: 202006
  3. AMLODIPINE [Concomitant]
     Active Substance: AMLODIPINE BESYLATE
  4. CITALOPRAM [Concomitant]
     Active Substance: CITALOPRAM HYDROBROMIDE
  5. DEFERASIROX [Concomitant]
     Active Substance: DEFERASIROX
  6. ACETAMINOPHEN\HYDROCODONE [Concomitant]
     Active Substance: ACETAMINOPHEN\HYDROCODONE
  7. Multivitamins/Minerals [Concomitant]
  8. TRAMADOL [Concomitant]
     Active Substance: TRAMADOL

REACTIONS (1)
  - Therapy interrupted [None]
